FAERS Safety Report 5190224-0 (Version None)
Quarter: 2006Q4

REPORT INFORMATION
  Report Type: 
  Country: None (occurrence: None)
  Receive Date: 20061222
  Receipt Date: 20061009
  Transmission Date: 20070319
  Serious: No
  Sender: FDA-Public Use
  Company Number: US-AMGEN-US196222

PATIENT
  Sex: Male

DRUGS (18)
  1. ARANESP [Suspect]
     Indication: DIALYSIS
     Dates: start: 20060101
  2. EPOGEN [Suspect]
     Indication: DIALYSIS
     Dates: start: 20060101, end: 20060101
  3. COUMADIN [Concomitant]
  4. ALLOPURINOL [Concomitant]
  5. DILTIAZEM HCL [Concomitant]
  6. COLACE [Concomitant]
  7. FLOMAX [Concomitant]
  8. AMIODARONE [Concomitant]
  9. HYDRALAZINE HYDROCHLORIDE [Concomitant]
  10. IMDUR [Concomitant]
  11. MIRALAX [Concomitant]
  12. LASIX [Concomitant]
  13. NEPHROCAPS [Concomitant]
  14. TOPRAL [Concomitant]
  15. VITAMIN D [Concomitant]
  16. DIOVAN [Concomitant]
  17. RENALTABS [Concomitant]
  18. K-DUR 10 [Concomitant]

REACTIONS (5)
  - CHILLS [None]
  - FATIGUE [None]
  - HAEMOGLOBIN DECREASED [None]
  - LETHARGY [None]
  - NAUSEA [None]
